FAERS Safety Report 20429906 (Version 1)
Quarter: 2022Q1

REPORT INFORMATION
  Report Type: Report from Study
  Country: FR (occurrence: FR)
  Receive Date: 20220204
  Receipt Date: 20220204
  Transmission Date: 20220423
  Serious: Yes (Hospitalization)
  Sender: FDA-Public Use
  Company Number: FR-SERVIER-S18010947

PATIENT

DRUGS (23)
  1. PEGASPARGASE [Suspect]
     Active Substance: PEGASPARGASE
     Indication: Acute lymphocytic leukaemia
     Dosage: 4400 IU, QD ON D4 AND D43
     Route: 042
     Dates: start: 20180917, end: 20181105
  2. VINCRISTINE SULFATE [Suspect]
     Active Substance: VINCRISTINE SULFATE
     Indication: Acute lymphocytic leukaemia
     Dosage: 2 MG, ON DAYS 1, 8, 15, 43 AND 50
     Route: 042
     Dates: start: 20180913, end: 20181112
  3. METHOTREXATE [Suspect]
     Active Substance: METHOTREXATE
     Indication: Acute lymphocytic leukaemia
     Dosage: 15 MG, ON DAYS 4 AND 31
     Route: 037
     Dates: start: 20180917, end: 20181024
  4. HYDROCORTISONE [Suspect]
     Active Substance: HYDROCORTISONE
     Indication: Acute lymphocytic leukaemia
     Dosage: 15 MG, ON DAYS 4 AND 31
     Route: 037
     Dates: start: 20180917, end: 20181024
  5. CYTARABINE [Suspect]
     Active Substance: CYTARABINE
     Indication: Acute lymphocytic leukaemia
     Dosage: 133 MG, ON DAYS 31-34 AND 38-41
     Route: 042
     Dates: start: 20181024, end: 20181103
  6. CYTARABINE [Suspect]
     Active Substance: CYTARABINE
     Dosage: 30 MG, ON DAYS 4 AND 31
     Route: 037
     Dates: start: 20180917, end: 20181024
  7. CANCIDAS [Suspect]
     Active Substance: CASPOFUNGIN ACETATE
     Indication: Candida infection
     Dosage: 70 MG, QD
     Route: 042
     Dates: start: 20180127, end: 20181220
  8. TN UNSPECIFIED [Concomitant]
     Indication: Acute lymphocytic leukaemia
     Dosage: 17.7 MG, ON DAYS 1-7 AND 15-21
     Route: 048
     Dates: start: 20180913, end: 20181004
  9. TN UNSPECIFIED [Concomitant]
     Indication: Acute lymphocytic leukaemia
     Dosage: 1770 MG, SINGLE
     Route: 042
     Dates: start: 20181022, end: 20181022
  10. TN UNSPECIFIED [Concomitant]
     Indication: Acute lymphocytic leukaemia
     Dosage: 106 MG ON DAYS 29-42
     Route: 048
     Dates: start: 20181022, end: 20181104
  11. TN UNSPECIFIED [Concomitant]
     Indication: Acute lymphocytic leukaemia
     Dosage: 44 MG, ON DAYS 1, 8 AND 15
     Route: 042
     Dates: start: 20180913, end: 20180928
  12. BACTRIM [Concomitant]
     Active Substance: SULFAMETHOXAZOLE\TRIMETHOPRIM
     Indication: Product used for unknown indication
     Dosage: 800 MG, 3X A WEEK
     Route: 065
  13. PERFALGAN [Concomitant]
     Active Substance: ACETAMINOPHEN
     Indication: Product used for unknown indication
     Dosage: 800 MG, QID
     Route: 065
  14. ESOMEPRAZOLE [Concomitant]
     Active Substance: ESOMEPRAZOLE
     Indication: Product used for unknown indication
     Dosage: 20 MG, QD
     Route: 065
  15. GAVISCON [Concomitant]
     Active Substance: ALUMINUM HYDROXIDE\MAGNESIUM CARBONATE
     Indication: Product used for unknown indication
     Dosage: 3 DF, PRN
     Route: 065
  16. PHLOROGLUCINOL [Concomitant]
     Active Substance: PHLOROGLUCINOL
     Indication: Product used for unknown indication
     Dosage: 3 DF, PRN
     Route: 065
  17. MORPHINE SULFATE [Concomitant]
     Active Substance: MORPHINE SULFATE
     Indication: Product used for unknown indication
     Dosage: 60 MG, QD
     Route: 065
  18. RIVOTRIL [Concomitant]
     Active Substance: CLONAZEPAM
     Indication: Neuralgia
     Dosage: 5 GTT, PRN
     Route: 065
  19. VALACYCLOVIR HYDROCHLORIDE [Concomitant]
     Active Substance: VALACYCLOVIR HYDROCHLORIDE
     Indication: Product used for unknown indication
     Dosage: 500 MG, BID
     Route: 065
  20. MAGNESIUM [Concomitant]
     Active Substance: MAGNESIUM
     Indication: Product used for unknown indication
     Dosage: 100 MG, BID
     Route: 065
  21. DUPHALAC [Concomitant]
     Active Substance: LACTULOSE
     Indication: Product used for unknown indication
     Dosage: 2 DF, QD
     Route: 065
  22. XANAX [Concomitant]
     Active Substance: ALPRAZOLAM
     Indication: Product used for unknown indication
     Dosage: 0.25 MG, BID
     Route: 065
  23. Topalgic [Concomitant]
     Indication: Product used for unknown indication
     Dosage: 1 DF, PRN
     Route: 065

REACTIONS (2)
  - Dysplasia [Recovering/Resolving]
  - Pain [Recovering/Resolving]

NARRATIVE: CASE EVENT DATE: 20181123
